FAERS Safety Report 14500015 (Version 1)
Quarter: 2018Q1

REPORT INFORMATION
  Report Type: Not Available
  Country: US (occurrence: US)
  Receive Date: 20180207
  Receipt Date: 20180207
  Transmission Date: 20180509
  Serious: No
  Sender: FDA-Public Use
  Company Number: US-FOUNDATIONCONSUMERHC-2017-US-013619

PATIENT
  Age: 20 Year
  Sex: Female
  Weight: 88.45 kg

DRUGS (2)
  1. VITAMIN C [Concomitant]
     Active Substance: ASCORBIC ACID
  2. PLAN B ONE-STEP [Suspect]
     Active Substance: LEVONORGESTREL
     Dosage: 1 PILL
     Route: 048
     Dates: start: 20171110, end: 20171110

REACTIONS (4)
  - Fatigue [Unknown]
  - Depressed mood [Unknown]
  - Vaginal haemorrhage [Unknown]
  - Crying [Unknown]

NARRATIVE: CASE EVENT DATE: 20171111
